FAERS Safety Report 8378955-2 (Version None)
Quarter: 2012Q2

REPORT INFORMATION
  Report Type: 
  Country: None (occurrence: None)
  Receive Date: 20120523
  Receipt Date: 20120518
  Transmission Date: 20120825
  Serious: No
  Sender: FDA-Public Use
  Company Number: US-PFIZER INC-2012121758

PATIENT

DRUGS (4)
  1. CALCIUM WITH VITAMIN D [Concomitant]
     Dosage: UNK
  2. VITAMIN B COMPLEX CAP [Concomitant]
     Dosage: UNK
  3. CELEBREX [Suspect]
     Dosage: 200 MG, 1X/DAY
  4. ASCORBIC ACID [Concomitant]
     Dosage: UNK

REACTIONS (2)
  - ARTHRALGIA [None]
  - ACTIVITIES OF DAILY LIVING IMPAIRED [None]
